FAERS Safety Report 25621098 (Version 1)
Quarter: 2025Q3

REPORT INFORMATION
  Report Type: Spontaneous
  Country: RU (occurrence: RU)
  Receive Date: 20250730
  Receipt Date: 20250730
  Transmission Date: 20251021
  Serious: Yes (Other)
  Sender: ABBVIE
  Company Number: RU-ABBVIE-6393336

PATIENT
  Age: 4 Year
  Sex: Female

DRUGS (1)
  1. SEVOFLURANE [Suspect]
     Active Substance: SEVOFLURANE
     Indication: Anaesthesia
     Route: 065

REACTIONS (3)
  - Hyperthermia malignant [Unknown]
  - Pyrexia [Unknown]
  - Respiratory arrest [Unknown]
